FAERS Safety Report 8785205 (Version 3)
Quarter: 2013Q1

REPORT INFORMATION
  Report Type: Spontaneous
  Country: US (occurrence: US)
  Receive Date: 20120914
  Receipt Date: 20130201
  Transmission Date: 20140127
  Serious: Yes (Hospitalization, Other)
  Sender: FDA-Public Use
  Company Number: US-MPIJNJ-2012-05902

PATIENT
  Age: 47 Year
  Sex: Female

DRUGS (18)
  1. VELCADE [Suspect]
     Indication: PLASMA CELL MYELOMA
     Dosage: 2 MG, Q4WEEKS
     Route: 042
     Dates: start: 20110509, end: 20111205
  2. BACTRIM DS [Concomitant]
     Indication: PRODUCT USED FOR UNKNOWN INDICATION
     Dosage: UNK UNK, BID
     Route: 048
     Dates: start: 20120620
  3. CIPRO                              /00042702/ [Concomitant]
     Indication: PRODUCT USED FOR UNKNOWN INDICATION
     Dosage: 500 MG, BID
     Route: 048
     Dates: start: 20120614
  4. DIAZEPAM [Concomitant]
     Indication: BLADDER SPASM
     Dosage: 5 MG, PRN
     Route: 048
     Dates: start: 20120601
  5. DILAUDID [Concomitant]
     Indication: PRODUCT USED FOR UNKNOWN INDICATION
     Dosage: 4 MG, PRN
     Route: 048
     Dates: start: 20111228
  6. FUROSEMIDE [Concomitant]
     Indication: SWELLING
     Dosage: 20 MG, PRN
     Route: 048
     Dates: start: 20111010
  7. GABAPENTIN [Concomitant]
     Indication: PRODUCT USED FOR UNKNOWN INDICATION
     Dosage: 300 MG, TID
     Route: 048
     Dates: start: 20111024
  8. HYDROCODONE W/ACETAMINOPHEN [Concomitant]
     Indication: PAIN
     Dosage: UNK UNK, PRN
     Route: 048
     Dates: start: 20120821
  9. LEVSIN [Concomitant]
     Indication: GASTROINTESTINAL PAIN
     Dosage: 0.125 MG, PRN
     Route: 048
     Dates: start: 20120601
  10. LYRICA [Concomitant]
     Indication: PRODUCT USED FOR UNKNOWN INDICATION
     Dosage: 100 MG, QD
     Route: 048
     Dates: start: 20110711
  11. MEGASTROL                          /00082601/ [Concomitant]
     Indication: PRODUCT USED FOR UNKNOWN INDICATION
     Dosage: UNK UNK, QD
     Route: 048
     Dates: start: 20120620
  12. OMEPRAZOLE [Concomitant]
     Indication: PRODUCT USED FOR UNKNOWN INDICATION
     Dosage: 20 MG, QD
     Route: 048
     Dates: start: 20120530
  13. ONDANSETRON [Concomitant]
     Indication: NAUSEA
     Dosage: 8 MG, PRN
     Route: 048
     Dates: start: 20120530
  14. OXYCODONE W/PARACETAMOL [Concomitant]
     Indication: PRODUCT USED FOR UNKNOWN INDICATION
     Dosage: UNK UNK, PRN
     Route: 048
     Dates: start: 20110826
  15. OXYCONTIN [Concomitant]
     Indication: PRODUCT USED FOR UNKNOWN INDICATION
     Dosage: 80 MG, BID
     Route: 048
     Dates: start: 20120224
  16. PERCOCET                           /00446701/ [Concomitant]
     Indication: PRODUCT USED FOR UNKNOWN INDICATION
     Dosage: UNK UNK, PRN
     Route: 048
     Dates: start: 20110826
  17. PROMETHAZINE [Concomitant]
     Indication: NAUSEA
     Dosage: 25 MG, PRN
     Route: 048
     Dates: start: 20120530
  18. TEMAZEPAM [Concomitant]
     Indication: PRODUCT USED FOR UNKNOWN INDICATION
     Dosage: 15 MG, QD
     Route: 048
     Dates: start: 20110523

REACTIONS (12)
  - Neuropathy peripheral [Not Recovered/Not Resolved]
  - Blood magnesium decreased [Recovered/Resolved]
  - Blood potassium decreased [Recovered/Resolved]
  - Mental status changes [Recovering/Resolving]
  - Hypercalcaemia [Recovered/Resolved]
  - Nausea [Recovered/Resolved]
  - Vomiting [Recovered/Resolved]
  - Abdominal pain [Recovered/Resolved]
  - Constipation [Recovered/Resolved]
  - Hypophagia [Recovered/Resolved]
  - Urinary tract infection [Unknown]
  - Lethargy [Recovered/Resolved]
